FAERS Safety Report 9192300 (Version 3)
Quarter: 2013Q3

REPORT INFORMATION
  Report Type: Spontaneous
  Country: JP (occurrence: JP)
  Receive Date: 20130327
  Receipt Date: 20130708
  Transmission Date: 20140515
  Serious: Yes (Other)
  Sender: FDA-Public Use
  Company Number: JP-JNJFOC-20130311899

PATIENT
  Age: 82 Year
  Sex: Female

DRUGS (2)
  1. DUROTEP MT [Suspect]
     Indication: BACK PAIN
     Route: 062
     Dates: start: 20130211, end: 20130312
  2. DUROTEP MT [Suspect]
     Indication: BACK PAIN
     Route: 062
     Dates: end: 20130211

REACTIONS (2)
  - Altered state of consciousness [Recovered/Resolved]
  - Amnesia [Recovered/Resolved]
